FAERS Safety Report 15481895 (Version 1)
Quarter: 2018Q4

REPORT INFORMATION
  Report Type: Spontaneous
  Country: US (occurrence: US)
  Receive Date: 20181003
  Receipt Date: 20181003
  Transmission Date: 20190205
  Serious: No
  Sender: FDA-Public Use
  Company Number: None

PATIENT
  Age: 67 Year
  Sex: Female

DRUGS (1)
  1. TYMLOS [Suspect]
     Active Substance: ABALOPARATIDE
     Indication: OSTEOPOROSIS
     Route: 058
     Dates: start: 20180507, end: 20180922

REACTIONS (5)
  - Pruritus [None]
  - Generalised erythema [None]
  - Ear pruritus [None]
  - Pharyngeal oedema [None]
  - Vomiting [None]

NARRATIVE: CASE EVENT DATE: 20180922
